FAERS Safety Report 24011361 (Version 1)
Quarter: 2024Q2

REPORT INFORMATION
  Report Type: Spontaneous
  Country: FR (occurrence: FR)
  Receive Date: 20240625
  Receipt Date: 20240625
  Transmission Date: 20240716
  Serious: Yes (Other)
  Sender: FDA-Public Use
  Company Number: FR-SANOFI-02072126

PATIENT
  Sex: Female

DRUGS (3)
  1. IBUPROFEN [Suspect]
     Active Substance: IBUPROFEN
     Indication: Product used for unknown indication
     Dosage: UNK
     Route: 065
  2. KARDEGIC [Suspect]
     Active Substance: ASPIRIN DL-LYSINE
     Indication: Product used for unknown indication
     Dosage: UNK
     Route: 065
  3. FENOFIBRATE [Concomitant]
     Active Substance: FENOFIBRATE
     Indication: Blood cholesterol
     Dosage: UNK
     Route: 065

REACTIONS (8)
  - Apnoea [Unknown]
  - Contusion [Unknown]
  - Dyskinesia [Unknown]
  - Faeces discoloured [Unknown]
  - Pharyngeal swelling [Unknown]
  - Fatigue [Unknown]
  - Constipation [Unknown]
  - Swelling face [Unknown]
